FAERS Safety Report 16306819 (Version 2)
Quarter: 2022Q2

REPORT INFORMATION
  Report Type: Spontaneous
  Country: US (occurrence: None)
  Receive Date: 20190513
  Receipt Date: 20220510
  Transmission Date: 20220720
  Serious: Yes (Other)
  Sender: FDA-Public Use
  Company Number: 2019SE64126

PATIENT
  Age: 21868 Day
  Sex: Female
  Weight: 44 kg

DRUGS (54)
  1. NEXIUM [Suspect]
     Active Substance: ESOMEPRAZOLE MAGNESIUM
     Route: 048
  2. PRILOSEC [Suspect]
     Active Substance: OMEPRAZOLE MAGNESIUM
     Route: 048
  3. PREVACID [Suspect]
     Active Substance: LANSOPRAZOLE
     Route: 065
  4. PROTONIX [Suspect]
     Active Substance: PANTOPRAZOLE SODIUM
     Route: 065
  5. MORPHINE [Concomitant]
     Active Substance: MORPHINE
  6. SULFISOXAZOLE [Concomitant]
     Active Substance: SULFISOXAZOLE
  7. TRAMADOL [Concomitant]
     Active Substance: TRAMADOL
  8. CALCIUM ACETATE [Concomitant]
     Active Substance: CALCIUM ACETATE
  9. CARVEDILOL [Concomitant]
     Active Substance: CARVEDILOL
  10. DORZOLAMIDE-LIMOLOL [Concomitant]
  11. ACETAMINOPHEN\HYDROCODONE BITARTRATE [Concomitant]
     Active Substance: ACETAMINOPHEN\HYDROCODONE BITARTRATE
  12. GABAPENTIN [Concomitant]
     Active Substance: GABAPENTIN
  13. MAGNESIUM OXIDE [Concomitant]
     Active Substance: MAGNESIUM OXIDE
  14. NIFEDIPINE [Concomitant]
     Active Substance: NIFEDIPINE
  15. RANITIDINE [Concomitant]
     Active Substance: RANITIDINE
  16. PAROXETINE [Concomitant]
     Active Substance: PAROXETINE
  17. SEVELAMER CARBONATE [Concomitant]
     Active Substance: SEVELAMER CARBONATE
  18. SODIUM BICARBONATE [Concomitant]
     Active Substance: SODIUM BICARBONATE
  19. INSULIN ASPART [Concomitant]
     Active Substance: INSULIN ASPART
  20. INSULIN DELEMIR [Concomitant]
  21. EYEDROPS [Concomitant]
  22. NICARDIPINE [Concomitant]
     Active Substance: NICARDIPINE
  23. NITROGLYCERIN [Concomitant]
     Active Substance: NITROGLYCERIN
  24. ALPRAZOLAM [Concomitant]
     Active Substance: ALPRAZOLAM
  25. POTASSIUM CHLORIDE [Concomitant]
     Active Substance: POTASSIUM CHLORIDE
  26. KAYEXALATE [Concomitant]
     Active Substance: SODIUM POLYSTYRENE SULFONATE
  27. CALCIUM CHLORIDE [Concomitant]
     Active Substance: CALCIUM CHLORIDE
  28. HEPARIN [Concomitant]
     Active Substance: HEPARIN SODIUM
  29. NEOMYCIN SULFATE/HYDROCORTISONE/THONZYLAMINE HYDROCHLORIDE/COLISTIN SU [Concomitant]
  30. VITAMINS [Concomitant]
     Active Substance: VITAMINS
  31. CORTISPORIN [Concomitant]
     Active Substance: BACITRACIN ZINC\HYDROCORTISONE\NEOMYCIN SULFATE\POLYMYXIN B SULFATE
  32. VITAMIN B COMPLEX [Concomitant]
     Active Substance: CYANOCOBALAMIN\DEXPANTHENOL\NIACINAMIDE\PYRIDOXINE HYDROCHLORIDE\RIBOFLAVIN 5^-PHOSPHATE SODIUM\THIA
  33. VASOPRESSIN [Concomitant]
     Active Substance: VASOPRESSIN
  34. ONDANSETRON [Concomitant]
     Active Substance: ONDANSETRON
  35. SODIUM POLYSTYRENE SULFONATE [Concomitant]
     Active Substance: SODIUM POLYSTYRENE SULFONATE
  36. DUONEB [Concomitant]
     Active Substance: ALBUTEROL SULFATE\IPRATROPIUM BROMIDE
  37. TYLENOL [Concomitant]
     Active Substance: ACETAMINOPHEN
  38. HYDROMORPHONE [Concomitant]
     Active Substance: HYDROMORPHONE
  39. LORATADINE [Concomitant]
     Active Substance: LORATADINE
  40. GLUCOPHAGE [Concomitant]
     Active Substance: METFORMIN HYDROCHLORIDE
  41. PREDNISONE [Concomitant]
     Active Substance: PREDNISONE
  42. MOXIFLOXACIN [Concomitant]
     Active Substance: MOXIFLOXACIN
  43. LOVENOX [Concomitant]
     Active Substance: ENOXAPARIN SODIUM
  44. ERYTHROPOIETIN [Concomitant]
     Active Substance: ERYTHROPOIETIN
  45. ATROVENT [Concomitant]
     Active Substance: IPRATROPIUM BROMIDE
  46. KETOROLAC [Concomitant]
     Active Substance: KETOROLAC TROMETHAMINE
  47. HYDRALAZINE [Concomitant]
     Active Substance: HYDRALAZINE HYDROCHLORIDE
  48. VERSED [Concomitant]
     Active Substance: MIDAZOLAM HYDROCHLORIDE
  49. FENTANYL [Concomitant]
     Active Substance: FENTANYL
  50. LIDOCAINE [Concomitant]
     Active Substance: LIDOCAINE
  51. VANCOMYCIN [Concomitant]
     Active Substance: VANCOMYCIN
  52. CLONIDINE [Concomitant]
     Active Substance: CLONIDINE
  53. SODIUM CHLORIDE [Concomitant]
     Active Substance: SODIUM CHLORIDE
  54. BISACODYL [Concomitant]
     Active Substance: BISACODYL

REACTIONS (6)
  - Chronic kidney disease [Unknown]
  - End stage renal disease [Unknown]
  - Acute kidney injury [Unknown]
  - Renal failure [Unknown]
  - Nephrogenic anaemia [Unknown]
  - Acute pulmonary oedema [Unknown]

NARRATIVE: CASE EVENT DATE: 20150710
